FAERS Safety Report 17680650 (Version 6)
Quarter: 2021Q1

REPORT INFORMATION
  Report Type: Report from Study
  Country: US (occurrence: US)
  Receive Date: 20200417
  Receipt Date: 20210119
  Transmission Date: 20210419
  Serious: No
  Sender: FDA-Public Use
  Company Number: NVSC2020US103019

PATIENT
  Sex: Male

DRUGS (2)
  1. COSENTYX [Suspect]
     Active Substance: SECUKINUMAB
     Indication: PSORIATIC ARTHROPATHY
     Dosage: 300 MG, QW
     Route: 058
  2. COSENTYX [Suspect]
     Active Substance: SECUKINUMAB
     Indication: PSORIATIC ARTHROPATHY
     Route: 058

REACTIONS (9)
  - Lymphadenitis [Unknown]
  - Arthralgia [Unknown]
  - Arthritis [Unknown]
  - Pruritus [Unknown]
  - Wrong technique in device usage process [Unknown]
  - Headache [Unknown]
  - Visual impairment [Unknown]
  - Lymph node rupture [Unknown]
  - Glycosylated haemoglobin increased [Unknown]
